FAERS Safety Report 8408254-1 (Version None)
Quarter: 2012Q2

REPORT INFORMATION
  Report Type: 
  Country: None (occurrence: None)
  Receive Date: 20120531
  Receipt Date: 20120531
  Transmission Date: 20120825
  Serious: Yes (Other)
  Sender: FDA-Public Use
  Company Number: None

PATIENT
  Sex: Female

DRUGS (1)
  1. TIKOSYN [Suspect]
     Dosage: 250MCG BID PO
     Route: 048
     Dates: start: 20111129, end: 20120227

REACTIONS (1)
  - MUSCLE SPASMS [None]
